FAERS Safety Report 19656583 (Version 4)
Quarter: 2022Q1

REPORT INFORMATION
  Report Type: Spontaneous
  Country: US (occurrence: US)
  Receive Date: 20210804
  Receipt Date: 20220118
  Transmission Date: 20220424
  Serious: No
  Sender: FDA-Public Use
  Company Number: US-SANOFI-00699206

PATIENT
  Age: 51 Year
  Sex: Male

DRUGS (1)
  1. LANTUS SOLOSTAR [Suspect]
     Active Substance: INSULIN GLARGINE
     Indication: Type 1 diabetes mellitus
     Dosage: 24 IU, QD (ONCE DAILLY)
     Route: 065

REACTIONS (3)
  - Injection site pain [Unknown]
  - Product preparation error [Unknown]
  - Visual impairment [Unknown]
